FAERS Safety Report 18213798 (Version 1)
Quarter: 2020Q3

REPORT INFORMATION
  Report Type: Spontaneous
  Country: US (occurrence: US)
  Receive Date: 20200831
  Receipt Date: 20200831
  Transmission Date: 20201103
  Serious: No
  Sender: FDA-Public Use
  Company Number: US-PFIZER INC-2020294573

PATIENT
  Age: 83 Year
  Sex: Female

DRUGS (1)
  1. ESTRING [Suspect]
     Active Substance: ESTRADIOL
     Dosage: 2 MG, EVERY 3 MONTHS (Q3 MO)
     Route: 067

REACTIONS (3)
  - Nocturia [Unknown]
  - Pollakiuria [Unknown]
  - Urinary incontinence [Unknown]
